FAERS Safety Report 4778010-4 (Version None)
Quarter: 2005Q3

REPORT INFORMATION
  Report Type: 
  Country: None (occurrence: None)
  Receive Date: 20050926
  Receipt Date: 20050920
  Transmission Date: 20060218
  Serious: Yes (Death, Life-Threatening)
  Sender: FDA-Public Use
  Company Number: 2005AP04980

PATIENT
  Age: 16800 Day
  Sex: Female

DRUGS (4)
  1. IRESSA [Suspect]
     Indication: NON-SMALL CELL LUNG CANCER STAGE IIIB
     Route: 048
     Dates: start: 20050906
  2. IRESSA [Suspect]
     Route: 048
     Dates: start: 20050906
  3. TRAMADOL HCL [Concomitant]
     Indication: PAIN
     Route: 048
     Dates: start: 20050607
  4. ZOLEDRONIC ACID [Concomitant]
     Indication: METASTASES TO BONE
     Route: 042
     Dates: start: 20050614

REACTIONS (4)
  - DYSPNOEA [None]
  - HYPONATRAEMIA [None]
  - HYPOTENSION [None]
  - METABOLIC ACIDOSIS [None]
